FAERS Safety Report 9334550 (Version 1)
Quarter: 2013Q2

REPORT INFORMATION
  Report Type: Spontaneous
  Country: US (occurrence: US)
  Receive Date: 20130606
  Receipt Date: 20130606
  Transmission Date: 20140414
  Serious: Yes (Hospitalization)
  Sender: FDA-Public Use
  Company Number: US-AMGEN-USASP2013028994

PATIENT
  Age: 59 Year
  Sex: Male
  Weight: 166 kg

DRUGS (6)
  1. XGEVA [Suspect]
     Indication: PROSTATE CANCER
     Dosage: 120 MG, Q4WK
     Route: 058
     Dates: start: 20130111, end: 20130111
  2. CASODEX [Concomitant]
     Dosage: 50 MG, QD
     Route: 048
  3. LISINOPRIL [Concomitant]
     Dosage: 20 MG, QD
     Route: 048
  4. OXYCONTIN [Concomitant]
     Dosage: 40 MG, BID
     Route: 048
  5. PERCOCET                           /00446701/ [Concomitant]
     Dosage: UNK UNK, TID
     Route: 048
  6. RAPAFLO [Concomitant]
     Dosage: 8 MG, QD
     Route: 048

REACTIONS (1)
  - Hypocalcaemia [Recovered/Resolved]
